FAERS Safety Report 4919128-2 (Version None)
Quarter: 2006Q1

REPORT INFORMATION
  Report Type: 
  Country: None (occurrence: None)
  Receive Date: 20060222
  Receipt Date: 20051011
  Transmission Date: 20060701
  Serious: Yes (Death, Hospitalization)
  Sender: FDA-Public Use
  Company Number: US-MERCK-0510USA06922

PATIENT
  Age: 83 Year
  Sex: Female
  Weight: 58 kg

DRUGS (5)
  1. VIOXX [Suspect]
     Indication: BACK PAIN
     Route: 048
     Dates: start: 20030401, end: 20031001
  2. VIOXX [Suspect]
     Indication: OSTEOARTHRITIS
     Route: 048
     Dates: start: 20030401, end: 20031001
  3. ARICEPT [Concomitant]
     Indication: AMNESIA
     Route: 065
  4. ACTONEL [Concomitant]
     Route: 065
  5. TYLENOL [Concomitant]
     Route: 065
     Dates: start: 20030929, end: 20031007

REACTIONS (4)
  - CEREBROVASCULAR ACCIDENT [None]
  - GLAUCOMA [None]
  - OSTEOARTHRITIS [None]
  - SPINAL COMPRESSION FRACTURE [None]
